FAERS Safety Report 9118336 (Version 1)
Quarter: 2013Q1

REPORT INFORMATION
  Report Type: Spontaneous
  Country: ES (occurrence: None)
  Receive Date: 20130128
  Receipt Date: 20130128
  Transmission Date: 20140127
  Serious: Yes (Other)
  Sender: FDA-Public Use
  Company Number: 2013VX000258

PATIENT
  Sex: Male
  Weight: 2 kg

DRUGS (2)
  1. TIMOLOL MALEATE (TIMOLOL MALEATE) [Suspect]
     Indication: PRODUCT USED FOR UNKNOWN INDICATION
     Dosage: ; UNK; TRPL?UNKNOWN  -  UNKNOWN
     Route: 064
  2. DORZOLAMIDE [Suspect]
     Indication: GLAUCOMA
     Dosage: ; UNK; TRPL?01/23/2009  -  09/--/2009
     Route: 064
     Dates: start: 20090123, end: 200909

REACTIONS (3)
  - Maternal drugs affecting foetus [None]
  - Foetal growth restriction [None]
  - Exposure during breast feeding [None]
